FAERS Safety Report 25648697 (Version 1)
Quarter: 2025Q3

REPORT INFORMATION
  Report Type: Spontaneous
  Country: US (occurrence: US)
  Receive Date: 20250806
  Receipt Date: 20250806
  Transmission Date: 20251020
  Serious: Yes (Other)
  Sender: GRAVITI PHARMACEUTICALS PRIVATE LIMITED
  Company Number: US-GRAVITIPHARMA-GRA-2507-US-LIT-0348

PATIENT
  Age: 94 Year
  Sex: Male

DRUGS (4)
  1. FUROSEMIDE [Suspect]
     Active Substance: FUROSEMIDE
     Indication: Respiratory distress
     Route: 065
  2. APIXABAN [Concomitant]
     Active Substance: APIXABAN
     Indication: Suicide attempt
     Route: 048
  3. CHARCOAL [Concomitant]
     Active Substance: ACTIVATED CHARCOAL
     Indication: Overdose
     Route: 065
  4. ANDEXANET ALFA [Concomitant]
     Active Substance: ANDEXANET ALFA
     Indication: Overdose
     Route: 065

REACTIONS (1)
  - Drug ineffective [Unknown]
